FAERS Safety Report 9606246 (Version 2)
Quarter: 2013Q4

REPORT INFORMATION
  Report Type: Spontaneous
  Country: US (occurrence: US)
  Receive Date: 20131008
  Receipt Date: 20131008
  Transmission Date: 20140711
  Serious: No
  Sender: FDA-Public Use
  Company Number: US-AMGEN-USASP2013045421

PATIENT
  Age: 89 Year
  Sex: Female

DRUGS (8)
  1. PROLIA [Suspect]
     Indication: OSTEOPOROSIS POSTMENOPAUSAL
     Dosage: UNK
  2. AMIODARONE [Concomitant]
  3. JANTOVEN [Concomitant]
  4. CARVEDILOL [Concomitant]
  5. AMLODIPINE [Concomitant]
  6. THYROXINE [Concomitant]
  7. CALCIUM [Concomitant]
  8. VITAMIN D                          /00107901/ [Concomitant]
     Dosage: UNK

REACTIONS (2)
  - Heart rate increased [Recovering/Resolving]
  - Back pain [Unknown]
